FAERS Safety Report 5719701-8 (Version None)
Quarter: 2008Q2

REPORT INFORMATION
  Report Type: 
  Country: None (occurrence: None)
  Receive Date: 20080423
  Receipt Date: 20070227
  Transmission Date: 20081010
  Serious: Yes (Disabling)
  Sender: FDA-Public Use
  Company Number: 235553

PATIENT
  Sex: Male

DRUGS (4)
  1. AVASTIN [Suspect]
     Indication: COLON CANCER
  2. ELOXATIN [Suspect]
     Indication: COLON CANCER
  3. ADRUCIL [Suspect]
     Indication: COLON CANCER
  4. METFORMIN HCL [Concomitant]

REACTIONS (1)
  - NEUROPATHY PERIPHERAL [None]
